FAERS Safety Report 13085694 (Version 1)
Quarter: 2017Q1

REPORT INFORMATION
  Report Type: Spontaneous
  Country: US (occurrence: US)
  Receive Date: 20170104
  Receipt Date: 20170104
  Transmission Date: 20170428
  Serious: Yes (Life-Threatening)
  Sender: FDA-Public Use
  Company Number: None

PATIENT
  Age: 33 Year
  Sex: Female
  Weight: 78.7 kg

DRUGS (1)
  1. XOLAIR [Suspect]
     Active Substance: OMALIZUMAB
     Indication: ASTHMA
     Dosage: ;?
     Route: 058
     Dates: start: 20161221, end: 20161221

REACTIONS (5)
  - Chest discomfort [None]
  - Dyspnoea [None]
  - Anaphylactic reaction [None]
  - Pharyngeal oedema [None]
  - Urticaria [None]

NARRATIVE: CASE EVENT DATE: 20161221
